FAERS Safety Report 5382857-3 (Version None)
Quarter: 2007Q3

REPORT INFORMATION
  Report Type: 
  Country: None (occurrence: None)
  Receive Date: 20070705
  Receipt Date: 20070620
  Transmission Date: 20080115
  Serious: Yes (Other)
  Sender: FDA-Public Use
  Company Number: 157998USA

PATIENT
  Age: 34 Year
  Sex: Male

DRUGS (2)
  1. METHYLPREDNISOLONE [Suspect]
     Indication: MULTIPLE SCLEROSIS
     Dosage: 1 GRAM, INTRAVENOUS (NOT OTHERWISE SPECIFIED) ; 1 GRAM, 1 IN 1 M, INTRAVENOUS (NOT OTHERWISE SPECIFI
     Route: 042
  2. GLATIRAMER ACETATE [Concomitant]

REACTIONS (2)
  - BLOOD ALBUMIN DECREASED [None]
  - HEPATIC NECROSIS [None]
